FAERS Safety Report 7874408-6 (Version None)
Quarter: 2011Q4

REPORT INFORMATION
  Report Type: 
  Country: None (occurrence: None)
  Receive Date: 20111030
  Receipt Date: 20110519
  Transmission Date: 20120403
  Serious: No
  Sender: FDA-Public Use
  Company Number: US-AMGEN-USASP2011026314

PATIENT
  Age: 67 Year
  Sex: Female
  Weight: 63.492 kg

DRUGS (7)
  1. ZOCOR [Concomitant]
     Dosage: 10 MG, UNK
  2. VITAMIN B COMPLEX CAP [Concomitant]
  3. ENBREL [Suspect]
     Indication: PRODUCT USED FOR UNKNOWN INDICATION
     Dosage: 50 MG, QWK
  4. DIOVAN [Concomitant]
     Dosage: 320 MG, UNK
  5. CALCIUM CARBONATE [Concomitant]
  6. MULTIVITAMIN                       /00097801/ [Concomitant]
  7. PLAVIX [Concomitant]
     Dosage: 75 MG, UNK

REACTIONS (4)
  - SINUSITIS [None]
  - HEADACHE [None]
  - NASAL CONGESTION [None]
  - PRODUCTIVE COUGH [None]
